FAERS Safety Report 4334696-X (Version None)
Quarter: 2004Q2

REPORT INFORMATION
  Report Type: 
  Country: None (occurrence: None)
  Receive Date: 20040407
  Receipt Date: 20040407
  Transmission Date: 20050107
  Serious: Yes (Life-Threatening)
  Sender: FDA-Public Use
  Company Number: None

PATIENT
  Age: 20 Year
  Sex: Male
  Weight: 49.8957 kg

DRUGS (1)
  1. ASACOL [Suspect]
     Indication: COLITIS ULCERATIVE
     Dosage: 6 PILLS ORAL
     Route: 048
     Dates: start: 20040101, end: 20040202

REACTIONS (2)
  - CRYPTOGENIC ORGANIZING PNEUMONIA [None]
  - WEIGHT DECREASED [None]
